FAERS Safety Report 15710934 (Version 1)
Quarter: 2018Q4

REPORT INFORMATION
  Report Type: Spontaneous
  Country: BR (occurrence: BR)
  Receive Date: 20181211
  Receipt Date: 20181211
  Transmission Date: 20190205
  Serious: Yes (Hospitalization)
  Sender: FDA-Public Use
  Company Number: BR-DSJP-DSE-2018-150780

PATIENT

DRUGS (2)
  1. LIXIANA 30MG [Suspect]
     Active Substance: EDOXABAN TOSYLATE
     Dosage: 30 MG, UNK
     Route: 065
  2. LIXIANA 30MG [Suspect]
     Active Substance: EDOXABAN TOSYLATE
     Indication: PRODUCT USED FOR UNKNOWN INDICATION
     Dosage: 30 MG, UNK
     Route: 065

REACTIONS (1)
  - Abdominal pain [Recovered/Resolved]
